FAERS Safety Report 24224207 (Version 4)
Quarter: 2025Q3

REPORT INFORMATION
  Report Type: Spontaneous
  Country: JP (occurrence: JP)
  Receive Date: 20240819
  Receipt Date: 20250802
  Transmission Date: 20251021
  Serious: Yes (Death, Other)
  Sender: ALEXION PHARMACEUTICALS
  Company Number: JP-ALXN-202408JPN000914JP

PATIENT
  Age: 27 Year
  Sex: Female

DRUGS (1)
  1. ULTOMIRIS [Suspect]
     Active Substance: RAVULIZUMAB-CWVZ
     Indication: Myasthenia gravis
     Dosage: 3300 MILLIGRAM, Q56
     Dates: start: 20230626

REACTIONS (2)
  - Respiratory failure [Fatal]
  - Thymoma malignant [Fatal]
